FAERS Safety Report 15939373 (Version 1)
Quarter: 2019Q1

REPORT INFORMATION
  Report Type: Spontaneous
  Country: US (occurrence: US)
  Receive Date: 20190208
  Receipt Date: 20190208
  Transmission Date: 20190417
  Serious: Yes (Hospitalization, Other)
  Sender: FDA-Public Use
  Company Number: US-COVIS PHARMA B.V.-2019COV00056

PATIENT
  Sex: Female
  Weight: 9.07 kg

DRUGS (6)
  1. LASIX [Concomitant]
     Active Substance: FUROSEMIDE
     Dosage: 1 ML, 1X/DAY
  2. SYNAGIS [Suspect]
     Active Substance: PALIVIZUMAB
     Indication: PROPHYLAXIS
     Dosage: 15 MG/KG, 1X/MONTH
     Route: 030
     Dates: start: 201711
  3. MYLICON DROPS [Concomitant]
     Dosage: 1.3 ML, 1X/DAY
  4. OMEPRAZOLE MAGNESIUM. [Suspect]
     Active Substance: OMEPRAZOLE MAGNESIUM
     Dosage: 4.4 ML, 1X/DAY
  5. VITAMIN D [Concomitant]
     Active Substance: CHOLECALCIFEROL
     Dosage: 1 ML, 1X/DAY
  6. DIGOXIN. [Concomitant]
     Active Substance: DIGOXIN
     Dosage: 0.75 ML, 2X/DAY

REACTIONS (6)
  - Bronchiolitis [Recovered/Resolved]
  - Hypoxia [Recovered/Resolved]
  - Rhinovirus infection [Recovered/Resolved]
  - Pneumonia [Recovered/Resolved]
  - Sleep apnoea syndrome [Unknown]
  - Viral infection [Recovered/Resolved]
